FAERS Safety Report 7669571-6 (Version None)
Quarter: 2011Q3

REPORT INFORMATION
  Report Type: 
  Country: None (occurrence: None)
  Receive Date: 20110808
  Receipt Date: 20110802
  Transmission Date: 20111222
  Serious: No
  Sender: FDA-Public Use
  Company Number: MX-GENZYME-MOZO-1000525

PATIENT

DRUGS (10)
  1. MOZOBIL [Suspect]
     Indication: HAEMATOPOIETIC STEM CELL MOBILISATION
     Dosage: 0.24 MG/KG, ONCE
     Route: 065
     Dates: start: 20101007, end: 20101007
  2. MOZOBIL [Suspect]
     Indication: NON-HODGKIN'S LYMPHOMA
  3. RITUXIMAB [Concomitant]
     Indication: NON-HODGKIN'S LYMPHOMA
     Dosage: 375 MG/M2, UNK
     Route: 042
  4. LYRICA [Concomitant]
     Indication: PAIN
  5. NEUPOGEN [Concomitant]
     Indication: HAEMATOPOIETIC STEM CELL MOBILISATION
     Dosage: 10 MCG/KG, UNK
     Route: 065
     Dates: start: 20101004
  6. CYCLOPHOSPHAMIDE [Concomitant]
     Indication: HAEMATOPOIETIC STEM CELL MOBILISATION
     Dosage: 3500 MG/M2, UNK
     Route: 065
     Dates: start: 20101004
  7. ZOVIRAX [Concomitant]
     Indication: PRODUCT USED FOR UNKNOWN INDICATION
     Dosage: 400 MG, UNK
     Dates: start: 20101009
  8. TRADOL [Concomitant]
     Indication: PAIN
     Dosage: UNK
  9. DEXAMETHASONE [Concomitant]
     Indication: NON-HODGKIN'S LYMPHOMA
     Dosage: 40 MG, 1X/W
     Route: 065
  10. MESNA [Concomitant]
     Indication: HAEMATOPOIETIC STEM CELL MOBILISATION
     Dosage: UNK
     Route: 065
     Dates: start: 20101004

REACTIONS (2)
  - DRUG INEFFECTIVE [None]
  - BLOOD STEM CELL HARVEST FAILURE [None]
